FAERS Safety Report 14330493 (Version 1)
Quarter: 2017Q4

REPORT INFORMATION
  Report Type: Spontaneous
  Country: JP (occurrence: JP)
  Receive Date: 20171227
  Receipt Date: 20171227
  Transmission Date: 20180321
  Serious: Yes (Other)
  Sender: FDA-Public Use
  Company Number: JP-VISTAPHARM, INC.-VER201712-001568

PATIENT
  Age: 70 Year
  Sex: Female
  Weight: 36.9 kg

DRUGS (1)
  1. PREDNISOLONE. [Suspect]
     Active Substance: PREDNISOLONE
     Indication: RHEUMATOID ARTHRITIS

REACTIONS (1)
  - Diabetes mellitus [Unknown]
